FAERS Safety Report 7299223-6 (Version None)
Quarter: 2011Q1

REPORT INFORMATION
  Report Type: 
  Country: None (occurrence: None)
  Receive Date: 20110217
  Receipt Date: 20110209
  Transmission Date: 20110831
  Serious: Yes (Life-Threatening)
  Sender: FDA-Public Use
  Company Number: JP-MERCK-1012USA03897

PATIENT
  Age: 73 Year
  Sex: Male

DRUGS (12)
  1. LIPITOR [Concomitant]
     Route: 065
     Dates: start: 20080901
  2. CARDENALIN [Concomitant]
     Route: 065
  3. PARIET [Concomitant]
     Route: 065
     Dates: start: 20080901
  4. JANUVIA [Suspect]
     Indication: TYPE 2 DIABETES MELLITUS
     Route: 048
     Dates: start: 20100913, end: 20101209
  5. CO DIO [Concomitant]
     Route: 065
     Dates: start: 20100809, end: 20101211
  6. TENORMIN [Concomitant]
     Route: 065
     Dates: start: 20101108, end: 20101210
  7. ASPIRIN [Concomitant]
     Route: 065
     Dates: start: 20080901
  8. ATELEC [Concomitant]
     Route: 065
     Dates: start: 20080901, end: 20100913
  9. ATELEC [Concomitant]
     Route: 065
     Dates: start: 20100914
  10. TENORMIN [Concomitant]
     Route: 065
     Dates: start: 20100914, end: 20101107
  11. ZYLORIC [Concomitant]
     Route: 065
     Dates: start: 20080901
  12. LASIX [Concomitant]
     Route: 065

REACTIONS (1)
  - BRADYCARDIA [None]
